FAERS Safety Report 7419700-4 (Version None)
Quarter: 2011Q2

REPORT INFORMATION
  Report Type: 
  Country: None (occurrence: None)
  Receive Date: 20110418
  Receipt Date: 20110411
  Transmission Date: 20111010
  Serious: Yes (Hospitalization, Other)
  Sender: FDA-Public Use
  Company Number: US-ELI_LILLY_AND_COMPANY-US201104003358

PATIENT
  Age: 73 Year
  Sex: Female

DRUGS (4)
  1. HUMULIN N [Suspect]
  2. NOVOLOG [Concomitant]
     Indication: DIABETES MELLITUS
     Dosage: UNK, QD
     Dates: start: 20110201
  3. INSULIN [Concomitant]
     Indication: DIABETES MELLITUS
  4. HUMULIN R [Suspect]
     Indication: DIABETES MELLITUS
     Dosage: UNK, BID
     Route: 065

REACTIONS (9)
  - BLOOD GLUCOSE INCREASED [None]
  - SINUSITIS [None]
  - STRESS [None]
  - BLOOD CALCIUM DECREASED [None]
  - PARATHYROID TUMOUR [None]
  - PNEUMONIA [None]
  - FEELING ABNORMAL [None]
  - GLYCOSYLATED HAEMOGLOBIN INCREASED [None]
  - DYSPHONIA [None]
